FAERS Safety Report 10207602 (Version 1)
Quarter: 2014Q2

REPORT INFORMATION
  Report Type: Spontaneous
  Country: US (occurrence: US)
  Receive Date: 20140530
  Receipt Date: 20140530
  Transmission Date: 20141212
  Serious: Yes (Other)
  Sender: FDA-Public Use
  Company Number: US-ACTAVIS-2014-10869

PATIENT
  Age: 58 Year
  Sex: Male

DRUGS (1)
  1. CARBIDOPA/LEVODOPA (AELLC) [Suspect]
     Indication: PARKINSON^S DISEASE
     Dosage: UNKNOWN
     Route: 065

REACTIONS (2)
  - Dyskinesia [Unknown]
  - Postoperative heterotopic calcification [Unknown]
